FAERS Safety Report 18764663 (Version 1)
Quarter: 2021Q1

REPORT INFORMATION
  Report Type: Spontaneous
  Country: RU (occurrence: CN)
  Receive Date: 20210120
  Receipt Date: 20210120
  Transmission Date: 20210419
  Serious: Yes (Hospitalization, Other)
  Sender: FDA-Public Use
  Company Number: RU-SA-2021SA009381

PATIENT
  Age: 70 Year
  Sex: Female
  Weight: 53 kg

DRUGS (3)
  1. FRAXIPARINE [Suspect]
     Active Substance: NADROPARIN CALCIUM
     Indication: ANTICOAGULANT THERAPY
     Dosage: 0.4 ML, QD
     Route: 058
     Dates: start: 20190101, end: 20190208
  2. PLAVIX [Suspect]
     Active Substance: CLOPIDOGREL BISULFATE
     Indication: ANTICOAGULANT THERAPY
     Dosage: 75 MG, QD
     Route: 048
     Dates: start: 20190119, end: 20190131
  3. PLAVIX [Suspect]
     Active Substance: CLOPIDOGREL BISULFATE
     Indication: PLATELET AGGREGATION INHIBITION

REACTIONS (4)
  - Gingival bleeding [Recovered/Resolved]
  - Haemorrhage urinary tract [Recovered/Resolved]
  - Dyspnoea [Recovered/Resolved]
  - Gastrointestinal haemorrhage [Recovered/Resolved]

NARRATIVE: CASE EVENT DATE: 20190122
